FAERS Safety Report 21066454 (Version 2)
Quarter: 2022Q3

REPORT INFORMATION
  Report Type: Spontaneous
  Country: DZ (occurrence: DZ)
  Receive Date: 20220711
  Receipt Date: 20220715
  Transmission Date: 20221026
  Serious: Yes (Life-Threatening, Other)
  Sender: FDA-Public Use
  Company Number: DZ-CELLTRION INC.-2022DZ010858

PATIENT

DRUGS (1)
  1. INFLIXIMAB [Suspect]
     Active Substance: INFLIXIMAB
     Indication: Crohn^s disease
     Dosage: 10 MG/KG EVERY 8 WEEKS
     Route: 041
     Dates: start: 20140101

REACTIONS (3)
  - Dyspnoea [Unknown]
  - Cough [Unknown]
  - Overdose [Unknown]

NARRATIVE: CASE EVENT DATE: 20220608
